FAERS Safety Report 20405003 (Version 1)
Quarter: 2022Q1

REPORT INFORMATION
  Report Type: Spontaneous
  Country: US (occurrence: None)
  Receive Date: 20220129
  Receipt Date: 20220129
  Transmission Date: 20220424
  Serious: Yes (Hospitalization)
  Sender: FDA-Public Use
  Company Number: None

PATIENT
  Sex: Female
  Weight: 62.1 kg

DRUGS (2)
  1. CYTARABINE [Suspect]
     Active Substance: CYTARABINE
  2. ERWINIA ASPARAGINASE [Concomitant]

REACTIONS (26)
  - Pseudomonas test positive [None]
  - Hypervolaemia [None]
  - Gastrointestinal sounds abnormal [None]
  - Incision site pain [None]
  - Pyrexia [None]
  - Hypotension [None]
  - Tachycardia [None]
  - Chills [None]
  - Abdominal distension [None]
  - Abdominal tenderness [None]
  - Tachypnoea [None]
  - Rash [None]
  - Adrenal insufficiency [None]
  - Neutrophil count decreased [None]
  - Haemoglobin decreased [None]
  - Platelet count decreased [None]
  - Activated partial thromboplastin time prolonged [None]
  - International normalised ratio decreased [None]
  - Ileus [None]
  - Pleural effusion [None]
  - Pericardial effusion [None]
  - Atelectasis [None]
  - Dry skin [None]
  - Flushing [None]
  - Acute kidney injury [None]
  - Hyperhidrosis [None]

NARRATIVE: CASE EVENT DATE: 20220112
